FAERS Safety Report 6056174-2 (Version None)
Quarter: 2009Q1

REPORT INFORMATION
  Report Type: 
  Country: None (occurrence: None)
  Receive Date: 20090123
  Receipt Date: 20090123
  Transmission Date: 20090719
  Serious: Yes (Life-Threatening)
  Sender: FDA-Public Use
  Company Number: None

PATIENT
  Sex: Female
  Weight: 19.5 kg

DRUGS (6)
  1. THALIDOMIDE [Suspect]
     Indication: LYMPHANGIOMA
     Dosage: 100 MG  QD PO
     Route: 048
  2. CELEBREX [Suspect]
     Indication: LYMPHANGIOMA
     Dosage: 200 MG BID PO
     Route: 048
  3. FENOFIBRATE [Suspect]
     Dosage: 67MG QD PO
     Route: 048
  4. ETOPOSIDE [Suspect]
     Dosage: 2 ML QD PO
     Route: 048
  5. BACTRIM [Concomitant]
  6. MIRALAX [Concomitant]

REACTIONS (7)
  - ALANINE AMINOTRANSFERASE INCREASED [None]
  - ASPARTATE AMINOTRANSFERASE INCREASED [None]
  - BLOOD PHOSPHORUS DECREASED [None]
  - BLOOD SODIUM DECREASED [None]
  - LYMPHOPENIA [None]
  - NEUTROPHIL COUNT ABNORMAL [None]
  - WHITE BLOOD CELL COUNT ABNORMAL [None]
